FAERS Safety Report 16746041 (Version 1)
Quarter: 2019Q3

REPORT INFORMATION
  Report Type: Spontaneous
  Country: GB (occurrence: GB)
  Receive Date: 20190827
  Receipt Date: 20190827
  Transmission Date: 20191005
  Serious: Yes (Hospitalization)
  Sender: FDA-Public Use
  Company Number: GB-MYLANLABS-2019M1079461

PATIENT
  Age: 33 Year
  Sex: Female

DRUGS (4)
  1. AZATHIOPRINE. [Suspect]
     Active Substance: AZATHIOPRINE
     Indication: COLITIS
     Dosage: 150 MG, DAILY
     Route: 065
  2. PREDNISOLONE. [Suspect]
     Active Substance: PREDNISOLONE
     Indication: COLITIS
     Dosage: 10 MG, 1X/DAY
     Route: 065
  3. METHOTREXATE SODIUM. [Suspect]
     Active Substance: METHOTREXATE SODIUM
     Indication: COLITIS
     Dosage: 25 MG, WEEKLY
     Route: 065
  4. ADALIMUMAB [Suspect]
     Active Substance: ADALIMUMAB
     Indication: COLITIS
     Dosage: 40 MG, WEEKLY
     Route: 058

REACTIONS (6)
  - Lymphopenia [Recovering/Resolving]
  - Off label use [Unknown]
  - Rash vesicular [Recovering/Resolving]
  - Hypogammaglobulinaemia [Recovering/Resolving]
  - Varicella zoster pneumonia [Recovering/Resolving]
  - Varicella zoster virus infection [Recovering/Resolving]
